FAERS Safety Report 5102915-8 (Version None)
Quarter: 2006Q3

REPORT INFORMATION
  Report Type: 
  Country: None (occurrence: None)
  Receive Date: 20060908
  Receipt Date: 20060823
  Transmission Date: 20061208
  Serious: Yes (Hospitalization)
  Sender: FDA-Public Use
  Company Number: US018187

PATIENT

DRUGS (1)
  1. ARSENIC TRIOXIDE [Suspect]
     Indication: METASTATIC RENAL CELL CARCINOMA
     Dosage: 0.3 MG/KG 0.3MG/KG/DAY X 5 CONSECUTIVE DAYS EVERY 28 DAYS QD INTRAVENOUS DRIP
     Route: 041

REACTIONS (1)
  - PNEUMONIA [None]
